FAERS Safety Report 7041344-7 (Version None)
Quarter: 2010Q4

REPORT INFORMATION
  Report Type: 
  Country: None (occurrence: None)
  Receive Date: 20101013
  Receipt Date: 20101004
  Transmission Date: 20110411
  Serious: Yes (Hospitalization, Other)
  Sender: FDA-Public Use
  Company Number: GB-GENZYME-CLOF-1001122

PATIENT
  Sex: Female
  Weight: 51.3 kg

DRUGS (26)
  1. EVOLTRA [Suspect]
     Indication: ACUTE MYELOID LEUKAEMIA
     Dosage: 60 MG, QDX5
     Route: 042
     Dates: start: 20100705, end: 20100709
  2. DAUNOXOME [Suspect]
     Indication: ACUTE MYELOID LEUKAEMIA
     Dosage: 92 MG, QOD
     Route: 042
     Dates: start: 20100705, end: 20100709
  3. CIPROFLOXACIN [Concomitant]
     Indication: PROPHYLAXIS
     Dosage: 250 MG, BID
     Route: 048
     Dates: start: 20100412, end: 20100726
  4. CIPROFLOXACIN [Concomitant]
     Indication: FEBRILE NEUTROPENIA
  5. NORETHISTERONE [Concomitant]
     Indication: PROPHYLAXIS
     Dosage: 10 MG, TID
     Route: 048
     Dates: start: 20100416
  6. VALACYCLOVIR [Concomitant]
     Indication: ANTIVIRAL TREATMENT
     Dosage: 500 MG, BID
     Route: 048
  7. COTRIM [Concomitant]
     Indication: ANTIFUNGAL PROPHYLAXIS
     Dosage: 480 MG, BID
     Route: 048
     Dates: start: 20100610
  8. OMEPRAZOLE [Concomitant]
     Indication: PROPHYLAXIS
     Dosage: 20 MG, QD
     Route: 048
     Dates: start: 20100412
  9. TRANEXAMIC ACID [Concomitant]
     Indication: PROPHYLAXIS
     Dosage: 1 G, TID
     Route: 048
     Dates: start: 20100515
  10. AMOXICILLIN [Concomitant]
     Indication: PROPHYLAXIS
     Dosage: 250 MG, BID
     Route: 048
     Dates: start: 20091204
  11. MAXOLON [Concomitant]
     Indication: ANTIEMETIC SUPPORTIVE CARE
     Dosage: 10 MG, TID
     Route: 048
  12. VORICONAZOLE [Concomitant]
     Indication: PNEUMONIA
     Dosage: 200 MG, BID
     Route: 048
     Dates: start: 20091106
  13. CASPOFUNGIN ACETATE [Concomitant]
     Indication: PNEUMONIA FUNGAL
     Dosage: 70 MG, QD
     Route: 042
  14. DIHYDROCODEINE COMPOUND [Concomitant]
     Indication: ANALGESIC THERAPY
     Dosage: 30 MG, PRN
     Route: 048
     Dates: start: 20100705
  15. DIHYDROCODEINE COMPOUND [Concomitant]
     Dosage: 60 MG, PRN
     Route: 048
     Dates: start: 20100705
  16. PARACETAMOL [Concomitant]
     Indication: ANALGESIC THERAPY
     Dosage: 1 G, PRN
     Route: 048
     Dates: start: 20100705
  17. NULYTELY [Concomitant]
     Indication: CONSTIPATION
     Dosage: 1 OTHER, TID
     Route: 048
  18. ONDANSETRON [Concomitant]
     Indication: ANTIEMETIC SUPPORTIVE CARE
     Dosage: 8 MG, TID
     Route: 048
     Dates: start: 20100705
  19. ONDANSETRON [Concomitant]
     Dosage: 8 MG, TID
     Route: 042
     Dates: start: 20100705
  20. ALLOPURINOL [Concomitant]
     Indication: PROPHYLAXIS
     Dosage: 100 MG, TID
     Route: 048
     Dates: start: 20100705
  21. LORAZEPAM [Concomitant]
     Indication: PRODUCT USED FOR UNKNOWN INDICATION
     Dosage: 1 MG, BID
     Route: 048
  22. CHLORHEXIDINE GLUCONATE [Concomitant]
     Indication: DENTAL DISORDER PROPHYLAXIS
     Dosage: 10 ML, TID
     Route: 048
  23. POTASSIUM CHLORIDE [Concomitant]
     Indication: ELECTROLYTE SUBSTITUTION THERAPY
     Dosage: 600 MG, TID
     Route: 048
  24. CETIRIZINE HCL [Concomitant]
     Indication: ANTIALLERGIC THERAPY
     Dosage: 10 MG, QD
     Route: 048
  25. DOCUSATE [Concomitant]
     Indication: CONSTIPATION
     Dosage: 100 MG, BID
     Route: 048
  26. HYOSCINE HBR HYT [Concomitant]
     Indication: PRODUCT USED FOR UNKNOWN INDICATION
     Dosage: 10 MG, TID
     Route: 048

REACTIONS (5)
  - ANAL HAEMORRHAGE [None]
  - EPISTAXIS [None]
  - FEBRILE NEUTROPENIA [None]
  - HAEMORRHAGE [None]
  - INFECTION [None]
